FAERS Safety Report 4696000-7 (Version None)
Quarter: 2005Q2

REPORT INFORMATION
  Report Type: 
  Country: None (occurrence: None)
  Receive Date: 20050621
  Receipt Date: 20050616
  Transmission Date: 20051028
  Serious: Yes (Other)
  Sender: FDA-Public Use
  Company Number: US-GLAXOSMITHKLINE-A0562983A

PATIENT
  Age: 76 Year
  Sex: Female

DRUGS (7)
  1. ADVAIR [Suspect]
     Indication: ASTHMA
     Dosage: 1PUFF TWICE PER DAY
     Route: 055
  2. SYNTHROID [Concomitant]
  3. EVISTA [Concomitant]
  4. FOSAMAX [Concomitant]
  5. RHINOCORT [Concomitant]
  6. VITAMINS [Concomitant]
  7. SINGULAIR [Concomitant]

REACTIONS (4)
  - CONTUSION [None]
  - SKIN ATROPHY [None]
  - SKIN HAEMORRHAGE [None]
  - SKIN INJURY [None]
